FAERS Safety Report 9148374 (Version 1)
Quarter: 2013Q1

REPORT INFORMATION
  Report Type: Spontaneous
  Country: US (occurrence: US)
  Receive Date: 20130308
  Receipt Date: 20130308
  Transmission Date: 20140127
  Serious: No
  Sender: FDA-Public Use
  Company Number: US-ENDO PHARMACEUTICALS INC.-VANT20120090

PATIENT
  Sex: Female
  Weight: 77.18 kg

DRUGS (2)
  1. VANTAS [Suspect]
     Indication: PROSTATE CANCER
     Route: 058
     Dates: start: 201212, end: 201212
  2. VANTAS [Suspect]
     Route: 058

REACTIONS (2)
  - Procedural complication [Recovered/Resolved]
  - Device extrusion [Recovered/Resolved]
